FAERS Safety Report 13950834 (Version 1)
Quarter: 2017Q3

REPORT INFORMATION
  Report Type: Spontaneous
  Country: US (occurrence: US)
  Receive Date: 20170908
  Receipt Date: 20170908
  Transmission Date: 20171128
  Serious: Yes (Other)
  Sender: FDA-Public Use
  Company Number: US-ROCHE-1131313

PATIENT
  Sex: Male

DRUGS (45)
  1. DECADRON [Concomitant]
     Active Substance: DEXAMETHASONE
     Dosage: 195/10
     Route: 065
     Dates: start: 20001122
  2. CYTOXAN [Concomitant]
     Active Substance: CYCLOPHOSPHAMIDE
     Route: 065
     Dates: start: 20010104
  3. ADRIAMYCIN [Concomitant]
     Active Substance: DOXORUBICIN HYDROCHLORIDE
     Route: 065
     Dates: start: 20001120
  4. EPOGEN [Concomitant]
     Active Substance: ERYTHROPOIETIN
     Route: 042
     Dates: start: 20001130
  5. BENADRYL [Concomitant]
     Active Substance: DIPHENHYDRAMINE HYDROCHLORIDE
     Route: 065
     Dates: start: 20010102
  6. BENADRYL [Concomitant]
     Active Substance: DIPHENHYDRAMINE HYDROCHLORIDE
     Route: 065
     Dates: start: 20010122
  7. GCSF OR GMCSF [Concomitant]
     Route: 058
     Dates: start: 20010119
  8. DECADRON [Concomitant]
     Active Substance: DEXAMETHASONE
     Dosage: 195/10
     Route: 065
     Dates: start: 20001213
  9. ADRIAMYCIN [Concomitant]
     Active Substance: DOXORUBICIN HYDROCHLORIDE
     Route: 065
     Dates: start: 20010104
  10. TYLENOL [Concomitant]
     Active Substance: ACETAMINOPHEN
     Route: 065
     Dates: start: 20010102
  11. GCSF OR GMCSF [Concomitant]
     Route: 058
     Dates: start: 20001211
  12. GCSF OR GMCSF [Concomitant]
     Route: 058
     Dates: start: 20001222
  13. GCSF OR GMCSF [Concomitant]
     Route: 058
     Dates: start: 20001224
  14. GCSF OR GMCSF [Concomitant]
     Route: 058
     Dates: start: 20010120
  15. VINCRISTINE [Concomitant]
     Active Substance: VINCRISTINE
     Route: 065
     Dates: start: 20001120
  16. EPOGEN [Concomitant]
     Active Substance: ERYTHROPOIETIN
     Route: 065
     Dates: start: 20001116
  17. RITUXAN [Suspect]
     Active Substance: RITUXIMAB
     Indication: B-CELL LYMPHOMA
     Route: 065
     Dates: start: 20001004
  18. GCSF OR GMCSF [Concomitant]
     Route: 058
     Dates: start: 20001115
  19. GCSF OR GMCSF [Concomitant]
     Route: 058
     Dates: start: 20001221
  20. GCSF OR GMCSF [Concomitant]
     Route: 065
     Dates: start: 20010118
  21. PREDNISONE. [Concomitant]
     Active Substance: PREDNISONE
     Route: 048
     Dates: start: 20010104
  22. RITUXAN [Suspect]
     Active Substance: RITUXIMAB
     Route: 065
     Dates: start: 20001120
  23. BENADRYL [Concomitant]
     Active Substance: DIPHENHYDRAMINE HYDROCHLORIDE
     Route: 065
     Dates: start: 20001120
  24. BENADRYL [Concomitant]
     Active Substance: DIPHENHYDRAMINE HYDROCHLORIDE
     Route: 065
     Dates: start: 20001211
  25. TYLENOL [Concomitant]
     Active Substance: ACETAMINOPHEN
     Route: 065
     Dates: start: 20001120
  26. VINCRISTINE [Concomitant]
     Active Substance: VINCRISTINE
     Route: 065
     Dates: start: 20010104
  27. EPOGEN [Concomitant]
     Active Substance: ERYTHROPOIETIN
     Route: 042
     Dates: start: 20001122
  28. EPOGEN [Concomitant]
     Active Substance: ERYTHROPOIETIN
     Route: 058
     Dates: start: 20001207
  29. RITUXAN [Suspect]
     Active Substance: RITUXIMAB
     Route: 065
     Dates: start: 20010122
  30. TYLENOL [Concomitant]
     Active Substance: ACETAMINOPHEN
     Route: 065
     Dates: start: 20001211
  31. GCSF OR GMCSF [Concomitant]
     Route: 058
     Dates: start: 20010120
  32. CYTOXAN [Concomitant]
     Active Substance: CYCLOPHOSPHAMIDE
     Route: 065
     Dates: start: 20001122
  33. ADRIAMYCIN [Concomitant]
     Active Substance: DOXORUBICIN HYDROCHLORIDE
     Route: 065
     Dates: start: 20001213
  34. PREDNISONE. [Concomitant]
     Active Substance: PREDNISONE
     Route: 048
  35. RITUXAN [Suspect]
     Active Substance: RITUXIMAB
     Route: 065
     Dates: start: 20001211
  36. TYLENOL [Concomitant]
     Active Substance: ACETAMINOPHEN
     Route: 065
     Dates: start: 20010122
  37. GCSF OR GMCSF [Concomitant]
     Route: 058
     Dates: start: 20001116
  38. GCSF OR GMCSF [Concomitant]
     Route: 058
     Dates: start: 20001223
  39. VINCRISTINE [Concomitant]
     Active Substance: VINCRISTINE
     Route: 065
     Dates: start: 20001213
  40. ANZEMET [Concomitant]
     Active Substance: DOLASETRON MESYLATE
     Dosage: 10/200
     Route: 065
     Dates: start: 20010102
  41. RITUXAN [Suspect]
     Active Substance: RITUXIMAB
     Route: 065
     Dates: start: 20010102
  42. GCSF OR GMCSF [Concomitant]
     Route: 065
     Dates: start: 20001117
  43. GCSF OR GMCSF [Concomitant]
     Route: 065
     Dates: start: 20001212
  44. TAGAMET [Concomitant]
     Active Substance: CIMETIDINE
  45. CYTOXAN [Concomitant]
     Active Substance: CYCLOPHOSPHAMIDE
     Route: 065
     Dates: start: 20001212

REACTIONS (1)
  - Platelet count decreased [Unknown]
